FAERS Safety Report 7266704-0 (Version None)
Quarter: 2011Q1

REPORT INFORMATION
  Report Type: 
  Country: None (occurrence: None)
  Receive Date: 20110201
  Receipt Date: 20110119
  Transmission Date: 20110831
  Serious: No
  Sender: FDA-Public Use
  Company Number: US-BIOGENIDEC-2010BI015720

PATIENT
  Age: 59 Year
  Sex: Male

DRUGS (2)
  1. TYSABRI [Suspect]
     Indication: MULTIPLE SCLEROSIS
     Route: 042
     Dates: start: 20080319
  2. AMPYRA [Concomitant]
     Dates: start: 20100101

REACTIONS (4)
  - BALANCE DISORDER [None]
  - TREMOR [None]
  - NERVOUSNESS [None]
  - ASTHENIA [None]
